FAERS Safety Report 4437069-4 (Version None)
Quarter: 2004Q3

REPORT INFORMATION
  Report Type: 
  Country: None (occurrence: None)
  Receive Date: 20040830
  Receipt Date: 20040720
  Transmission Date: 20050211
  Serious: Yes (Disabling)
  Sender: FDA-Public Use
  Company Number: DE-GLAXOSMITHKLINE-D0044287A

PATIENT
  Age: 14 Year
  Sex: Male
  Weight: 52 kg

DRUGS (3)
  1. VIANI MITE [Suspect]
     Indication: ASTHMA
     Dosage: 2PUFF TWICE PER DAY
     Route: 055
     Dates: start: 19880101
  2. SINGULAIR [Concomitant]
     Dosage: 10MG UNKNOWN
     Route: 048
     Dates: start: 20040708
  3. NASONEX [Concomitant]
     Route: 045
     Dates: start: 20040708

REACTIONS (1)
  - SKIN STRIAE [None]
